FAERS Safety Report 4899033-0 (Version None)
Quarter: 2006Q1

REPORT INFORMATION
  Report Type: 
  Country: None (occurrence: None)
  Receive Date: 20060202
  Receipt Date: 20060109
  Transmission Date: 20060701
  Serious: Yes (Life-Threatening, Hospitalization, Other)
  Sender: FDA-Public Use
  Company Number: US-MERCK-0601USA00951

PATIENT
  Age: 70 Year
  Sex: Male

DRUGS (4)
  1. VYTORIN [Suspect]
     Route: 048
     Dates: end: 20051219
  2. AVAPRO [Concomitant]
     Route: 065
  3. ASPIRIN [Concomitant]
     Route: 048
  4. COUMADIN [Concomitant]
     Route: 065
     Dates: end: 20051219

REACTIONS (4)
  - ARTHROPATHY [None]
  - HEPATIC STEATOSIS [None]
  - HEPATITIS [None]
  - PANCREATITIS ACUTE [None]
